FAERS Safety Report 13900957 (Version 1)
Quarter: 2017Q3

REPORT INFORMATION
  Report Type: Spontaneous
  Country: US (occurrence: US)
  Receive Date: 20170824
  Receipt Date: 20170824
  Transmission Date: 20171127
  Serious: Yes (Other)
  Sender: FDA-Public Use
  Company Number: US-ENDO PHARMACEUTICALS INC-2017-002814

PATIENT
  Sex: Male
  Weight: 99.79 kg

DRUGS (24)
  1. REMICADE [Concomitant]
     Active Substance: INFLIXIMAB
     Dosage: 500 MG IV INFUSION EVERY 8 WEEKS
  2. ELIQUIS [Concomitant]
     Active Substance: APIXABAN
     Indication: CARDIAC FLUTTER
     Dosage: 5 MG, TWICE A DAY
     Route: 048
     Dates: start: 201704
  3. LOSARTAN. [Concomitant]
     Active Substance: LOSARTAN
     Indication: BLOOD PRESSURE ABNORMAL
     Dosage: 1 DF, OD
     Route: 048
     Dates: start: 201502
  4. AZATHIOPRINE. [Concomitant]
     Active Substance: AZATHIOPRINE
     Indication: PULMONARY SARCOIDOSIS
     Dosage: 50 MG, OD
     Route: 048
     Dates: start: 201511
  5. GABAPENTIN. [Concomitant]
     Active Substance: GABAPENTIN
     Indication: NEUROPATHY PERIPHERAL
     Dosage: 1.5 DF, TID
     Route: 048
     Dates: start: 201603
  6. REMICADE [Concomitant]
     Active Substance: INFLIXIMAB
     Indication: PULMONARY SARCOIDOSIS
     Dosage: 500 MG IV INFUSION OVER 4 HOURS EVERY 6 WEEKS
     Route: 042
     Dates: start: 201602
  7. ELIQUIS [Concomitant]
     Active Substance: APIXABAN
     Indication: ATRIAL FIBRILLATION
  8. PREDNISONE TABLETS 20MG [Suspect]
     Active Substance: PREDNISONE
     Indication: PULMONARY SARCOIDOSIS
     Dosage: 2 DF, DAILY
     Route: 048
     Dates: start: 201408
  9. AMBIEN CR [Concomitant]
     Active Substance: ZOLPIDEM TARTRATE
     Indication: PRODUCT USED FOR UNKNOWN INDICATION
     Dosage: UNK UNK, UNKNOWN
     Route: 065
  10. VORICONAZOLE. [Concomitant]
     Active Substance: VORICONAZOLE
     Indication: ASPERGILLUS INFECTION
     Dosage: 200 MG, BID
     Route: 048
     Dates: start: 201703
  11. VFEND [Concomitant]
     Active Substance: VORICONAZOLE
     Indication: PNEUMONIA
     Dosage: 2 DF, EVERY 12 HOURLY
     Route: 048
     Dates: start: 201702
  12. IMURAN [Concomitant]
     Active Substance: AZATHIOPRINE
     Indication: SARCOIDOSIS
     Dosage: UNK
     Dates: start: 201409
  13. PREDNISONE TABLETS [Suspect]
     Active Substance: PREDNISONE
     Indication: PULMONARY SARCOIDOSIS
     Dosage: 5 MG, UNKNOWN
     Route: 048
  14. PREDNISONE TABLETS 20MG [Suspect]
     Active Substance: PREDNISONE
     Dosage: 1 DF, DAILY
     Route: 048
     Dates: start: 201409
  15. MULTIVITAMIN                       /00097801/ [Concomitant]
     Active Substance: VITAMINS
     Indication: SUPPLEMENTATION THERAPY
     Dosage: 1 DF, DAILY
     Route: 048
     Dates: start: 2010
  16. PREDNISONE TABLETS 1MG [Suspect]
     Active Substance: PREDNISONE
     Indication: PULMONARY SARCOIDOSIS
     Dosage: 2 DF, DAILY
     Route: 048
  17. PREDNISONE. [Suspect]
     Active Substance: PREDNISONE
     Dosage: 3 DF, DAILY FOR WEEK 2
     Route: 065
  18. PREDNISONE. [Suspect]
     Active Substance: PREDNISONE
     Dosage: 2 DF, DAILY
     Route: 065
  19. LYRICA [Concomitant]
     Active Substance: PREGABALIN
     Indication: PULMONARY SARCOIDOSIS
  20. PLAQUENIL                          /00072602/ [Concomitant]
     Active Substance: HYDROXYCHLOROQUINE DIPHOSPHATE
     Indication: PULMONARY SARCOIDOSIS
     Dosage: 200 MG, OD
     Route: 048
     Dates: start: 201409
  21. PREDNISONE. [Suspect]
     Active Substance: PREDNISONE
     Indication: PULMONARY SARCOIDOSIS
     Dosage: 4 DF, DAILY
     Route: 065
     Dates: start: 201702
  22. LYRICA [Concomitant]
     Active Substance: PREGABALIN
     Indication: SMALL FIBRE NEUROPATHY
     Dosage: 3 DF, DAILY
     Route: 048
     Dates: start: 201608
  23. ASPIRIN                            /00002701/ [Concomitant]
     Active Substance: ASPIRIN
     Indication: PRODUCT USED FOR UNKNOWN INDICATION
     Dosage: UNK UNK, UNKNOWN
     Route: 065
  24. ZOLPIDEM [Concomitant]
     Active Substance: ZOLPIDEM\ZOLPIDEM TARTRATE
     Indication: SLEEP DISORDER
     Dosage: 10 MG TABLET ONCE A NIGHT
     Route: 048
     Dates: start: 201604

REACTIONS (3)
  - Adverse event [Unknown]
  - Cataract [Unknown]
  - Eye disorder [Unknown]
